FAERS Safety Report 5189824-3 (Version None)
Quarter: 2006Q4

REPORT INFORMATION
  Report Type: 
  Country: None (occurrence: None)
  Receive Date: 20061218
  Receipt Date: 20061205
  Transmission Date: 20070319
  Serious: Yes (Hospitalization)
  Sender: FDA-Public Use
  Company Number: 2006BI016505

PATIENT
  Age: 67 Year
  Sex: Female

DRUGS (8)
  1. AVONEX [Suspect]
     Indication: MULTIPLE SCLEROSIS
     Dosage: 30 UG; QW; IM
     Route: 030
     Dates: start: 19971201
  2. AVONEX [Suspect]
     Indication: MULTIPLE SCLEROSIS
     Dosage: 30 UG; QW; IM
     Route: 030
     Dates: start: 20030901
  3. XANAX [Concomitant]
  4. NAPROSYN [Concomitant]
  5. NEURONTIN [Concomitant]
  6. DYAZIDE [Concomitant]
  7. BACLOFEN [Concomitant]
  8. LASIX [Concomitant]

REACTIONS (4)
  - FALL [None]
  - INFECTION [None]
  - MUSCLE SPASTICITY [None]
  - OEDEMA PERIPHERAL [None]
